FAERS Safety Report 6960164-2 (Version None)
Quarter: 2010Q3

REPORT INFORMATION
  Report Type: 
  Country: None (occurrence: None)
  Receive Date: 20100901
  Receipt Date: 20100820
  Transmission Date: 20110219
  Serious: Yes (Disabling)
  Sender: FDA-Public Use
  Company Number: CH-SANOFI-AVENTIS-2010SA049806

PATIENT
  Age: 57 Year
  Sex: Female

DRUGS (2)
  1. TAXOTERE [Suspect]
     Indication: BREAST CANCER
     Route: 042
     Dates: start: 20090501, end: 20090801
  2. ENDOXAN [Concomitant]
     Indication: BREAST CANCER
     Route: 042
     Dates: start: 20090501, end: 20090801

REACTIONS (2)
  - LIGAMENT INJURY [None]
  - SYNOVIAL RUPTURE [None]
